FAERS Safety Report 4514396-3 (Version None)
Quarter: 2004Q4

REPORT INFORMATION
  Report Type: 
  Country: None (occurrence: None)
  Receive Date: 20041124
  Receipt Date: 20041117
  Transmission Date: 20050328
  Serious: Yes (Hospitalization)
  Sender: FDA-Public Use
  Company Number: MK200411-0202-1

PATIENT
  Age: 47 Year
  Sex: Female

DRUGS (2)
  1. TOFRANIL TAB [Suspect]
     Dates: start: 20041014, end: 20041109
  2. TEGRETOL [Suspect]

REACTIONS (2)
  - AGRANULOCYTOSIS [None]
  - NEUTROPENIA [None]
